FAERS Safety Report 5056762-6 (Version None)
Quarter: 2006Q2

REPORT INFORMATION
  Report Type: 
  Country: None (occurrence: None)
  Receive Date: 20060619
  Receipt Date: 20060209
  Transmission Date: 20061013
  Serious: Yes (Other)
  Sender: FDA-Public Use
  Company Number: US-2006-001927

PATIENT
  Age: 49 Year
  Sex: Male
  Weight: 90.7 kg

DRUGS (8)
  1. FLUDARA [Suspect]
     Indication: NON-HODGKIN'S LYMPHOMA
     Dosage: 25MG/M2,D1-D4Q28D,INTRAVENOUS
     Route: 042
     Dates: start: 20050321, end: 20050613
  2. RITUXAN [Concomitant]
  3. LAMICTAL [Concomitant]
  4. BUMEX [Concomitant]
  5. ATACAND [Concomitant]
  6. ZYLOPRIM [Concomitant]
  7. MIRALAX [Concomitant]
  8. GLUCOTROL [Concomitant]

REACTIONS (2)
  - ANAEMIA [None]
  - PANCYTOPENIA [None]
